FAERS Safety Report 5680297-0 (Version None)
Quarter: 2008Q1

REPORT INFORMATION
  Report Type: 
  Country: None (occurrence: None)
  Receive Date: 20080326
  Receipt Date: 20080324
  Transmission Date: 20080703
  Serious: Yes (Other)
  Sender: FDA-Public Use
  Company Number: US-BAYER-200714752NA

PATIENT
  Sex: Female
  Weight: 54 kg

DRUGS (1)
  1. MIRENA [Suspect]
     Indication: CONTRACEPTION
     Dosage: TOTAL DAILY DOSE: 20 ?G
     Route: 015
     Dates: start: 20060401

REACTIONS (7)
  - BACK PAIN [None]
  - DYSPAREUNIA [None]
  - LOSS OF LIBIDO [None]
  - MOOD ALTERED [None]
  - PROCEDURAL PAIN [None]
  - UTERINE RUPTURE [None]
  - VOMITING [None]
